FAERS Safety Report 9222717 (Version 1)
Quarter: 2013Q2

REPORT INFORMATION
  Report Type: Spontaneous
  Country: US (occurrence: US)
  Receive Date: 20130410
  Receipt Date: 20130410
  Transmission Date: 20140414
  Serious: Yes (Other)
  Sender: FDA-Public Use
  Company Number: US-BAYER-2013-045110

PATIENT
  Sex: Female
  Weight: 82 kg

DRUGS (1)
  1. BAYER GENUINE ASPIRIN ORIGINAL STRENGTH [Suspect]
     Dosage: 15 DF, UNK
     Dates: start: 20130407

REACTIONS (1)
  - Intentional overdose [None]
